FAERS Safety Report 4533498-9 (Version None)
Quarter: 2005Q1

REPORT INFORMATION
  Report Type: 
  Country: None (occurrence: None)
  Receive Date: 20041206
  Receipt Date: 20040916
  Transmission Date: 20050727
  Serious: No
  Sender: FDA-Public Use
  Company Number: USA040977991

PATIENT
  Age: 40 Year
  Sex: Female

DRUGS (1)
  1. CYMBALTA [Suspect]
     Indication: PAIN
     Dosage: 60 MG DAY

REACTIONS (5)
  - ANXIETY [None]
  - ASTHENIA [None]
  - DELIRIUM [None]
  - DIZZINESS [None]
  - TREMOR [None]
